FAERS Safety Report 14817588 (Version 1)
Quarter: 2018Q2

REPORT INFORMATION
  Report Type: Spontaneous
  Country: AU (occurrence: AU)
  Receive Date: 20180426
  Receipt Date: 20180426
  Transmission Date: 20180711
  Serious: Yes (Death)
  Sender: FDA-Public Use
  Company Number: AU-BAXTER-2018BAX012201

PATIENT
  Age: 79 Year
  Sex: Male

DRUGS (10)
  1. CERNEVIT [Suspect]
     Active Substance: VITAMINS
     Indication: PARENTERAL NUTRITION
     Dosage: VIA PICC LINE
     Route: 042
     Dates: start: 20180327, end: 20180414
  2. CALCIUM CHLORIDE. [Suspect]
     Active Substance: CALCIUM CHLORIDE
     Indication: PARENTERAL NUTRITION
     Dosage: STRENGTH: 1 MMOL/ML (BAXTER UNLICENSED SPECIAL) VIA PICC LINE
     Route: 042
     Dates: start: 20180327, end: 20180414
  3. STERILE WATER [Suspect]
     Active Substance: WATER
     Indication: PARENTERAL NUTRITION
     Dosage: VIA PICC LINE
     Route: 042
     Dates: start: 20180327, end: 20180414
  4. SODIUM ASCORBATE [Suspect]
     Active Substance: SODIUM ASCORBATE
     Indication: PARENTERAL NUTRITION
     Dosage: STRENGTH: 15 G/50 ML (BAXTER UNLICENSED SPECIAL) VIA PICC LINE
     Route: 042
     Dates: start: 20180327, end: 20180414
  5. OLIMEL [Suspect]
     Active Substance: AMINO ACIDS\DEXTROSE\SOYBEAN OIL
     Indication: PARENTERAL NUTRITION
     Dosage: (VOLUME: 2000 ML) VIA PICC LINE
     Route: 042
     Dates: start: 20180327, end: 20180414
  6. MAGNESIUM CHLORIDE. [Suspect]
     Active Substance: MAGNESIUM CHLORIDE
     Indication: PARENTERAL NUTRITION
     Dosage: STRENGTH: 1 MMOL/ML (BAXTER UNLICENSED SPECIAL) VIA PICC LINE
     Route: 042
     Dates: start: 20180327, end: 20180414
  7. VITAMIN K [Suspect]
     Active Substance: PHYTONADIONE
     Indication: PARENTERAL NUTRITION
     Dosage: (BAXTER UNLICENSED SPECIAL)
     Route: 042
     Dates: start: 20180327, end: 20180414
  8. BAXTER 5% GLUCOSE 50G_1000ML INJECTION BP BAG AHB0064 [Suspect]
     Active Substance: DEXTROSE
     Indication: PARENTERAL NUTRITION
     Dosage: VIA PICC LINE
     Route: 042
     Dates: start: 20180327, end: 20180414
  9. POTASSIUM CHLORIDE. [Suspect]
     Active Substance: POTASSIUM CHLORIDE
     Indication: PARENTERAL NUTRITION
     Dosage: STRENGTH: 3 MMOL/ML (BAXTER UNLICENSED SPECIAL) VIA PICC LINE
     Route: 042
     Dates: start: 20180327, end: 20180414
  10. ADULT TRACE ELEMENTS [Suspect]
     Active Substance: MINERALS
     Indication: PARENTERAL NUTRITION
     Dosage: (BAXTER UNLICENSED SPECIAL) VIA PICC LINE
     Route: 042
     Dates: start: 20180327, end: 20180414

REACTIONS (2)
  - Neutropenic sepsis [Fatal]
  - Pseudomonal sepsis [Fatal]

NARRATIVE: CASE EVENT DATE: 20180414
